FAERS Safety Report 7443644-5 (Version None)
Quarter: 2011Q2

REPORT INFORMATION
  Report Type: 
  Country: None (occurrence: None)
  Receive Date: 20110428
  Receipt Date: 20110426
  Transmission Date: 20111010
  Serious: Yes (Other)
  Sender: FDA-Public Use
  Company Number: US-PFIZER INC-2010130836

PATIENT
  Sex: Female
  Weight: 67.574 kg

DRUGS (7)
  1. ZYRTEC [Concomitant]
     Indication: MYCOTIC ALLERGY
     Dosage: UNK
  2. CETIRIZINE HCL AND PSEUDOEPHEDRINE [Concomitant]
     Indication: HYPERSENSITIVITY
     Dosage: UNK
  3. LYRICA [Suspect]
     Indication: NEURALGIA
  4. LYRICA [Suspect]
     Indication: ABDOMINAL PAIN UPPER
     Dosage: 50 MG, 2X/DAY
     Route: 048
     Dates: start: 20090101
  5. KLONOPIN [Concomitant]
     Indication: ANXIETY
     Dosage: 1 MG, 2X/DAY
  6. KLONOPIN [Concomitant]
     Dosage: UNK
  7. LYRICA [Suspect]
     Indication: GENERALISED ANXIETY DISORDER
     Dosage: 25 MG, 2X/DAY
     Route: 048
     Dates: start: 20080101

REACTIONS (7)
  - CONSTIPATION [None]
  - WEIGHT INCREASED [None]
  - BLOOD CHOLESTEROL INCREASED [None]
  - POOR QUALITY SLEEP [None]
  - DRY MOUTH [None]
  - ABDOMINAL DISTENSION [None]
  - NERVOUS SYSTEM DISORDER [None]
